FAERS Safety Report 16138795 (Version 1)
Quarter: 2019Q1

REPORT INFORMATION
  Report Type: Report from Study
  Country: BR (occurrence: BR)
  Receive Date: 20190330
  Receipt Date: 20190330
  Transmission Date: 20190418
  Serious: Yes (Death, Hospitalization, Other)
  Sender: FDA-Public Use
  Company Number: PHHY2019BR069703

PATIENT
  Age: 64 Year
  Sex: Male

DRUGS (1)
  1. VOTRIENT [Suspect]
     Active Substance: PAZOPANIB HYDROCHLORIDE
     Indication: RENAL CANCER
     Dosage: UNK
     Route: 065
     Dates: start: 20180723

REACTIONS (5)
  - Incorrect route of product administration [Unknown]
  - Cardiac arrest [Fatal]
  - Renal cancer recurrent [Unknown]
  - Dyspnoea [Fatal]
  - Liver injury [Unknown]

NARRATIVE: CASE EVENT DATE: 20190318
